FAERS Safety Report 20706435 (Version 1)
Quarter: 2022Q2

REPORT INFORMATION
  Report Type: Report from Study
  Country: BR (occurrence: BR)
  Receive Date: 20220413
  Receipt Date: 20220413
  Transmission Date: 20220721
  Serious: Yes (Other)
  Sender: FDA-Public Use
  Company Number: BR-NOVARTISPH-NVSC2022BR084120

PATIENT
  Age: 83 Year
  Sex: Female

DRUGS (1)
  1. DIOVAN HCT [Suspect]
     Active Substance: HYDROCHLOROTHIAZIDE\VALSARTAN
     Indication: Product used for unknown indication
     Dosage: 1 DOSAGE FORM, QD (IN THE MORNING) (STARTED ABOUT MORE THAN 10 YEARS AGO)
     Route: 065

REACTIONS (5)
  - Diabetes mellitus [Unknown]
  - Dementia [Unknown]
  - Brain injury [Unknown]
  - Memory impairment [Unknown]
  - Product prescribing error [Unknown]
